FAERS Safety Report 21291193 (Version 1)
Quarter: 2022Q3

REPORT INFORMATION
  Report Type: Spontaneous
  Country: US (occurrence: US)
  Receive Date: 20220903
  Receipt Date: 20220903
  Transmission Date: 20221027
  Serious: No
  Sender: FDA-Public Use
  Company Number: US-drreddys-SPO/USA/22/0153585

PATIENT
  Age: 21 Year
  Sex: Female

DRUGS (1)
  1. ZENATANE [Suspect]
     Active Substance: ISOTRETINOIN
     Indication: Acne
     Dosage: RMA ISSUE DATE: 28 JULY 2016 05:06:40 PM, 12 SEPTEMBER 2016 03:02:53 PM, 18 OCTOBER 2016 11:38:53 AM

REACTIONS (1)
  - Adverse drug reaction [Unknown]
